FAERS Safety Report 4691901-8 (Version None)
Quarter: 2005Q2

REPORT INFORMATION
  Report Type: 
  Country: None (occurrence: None)
  Receive Date: 20050614
  Receipt Date: 20050601
  Transmission Date: 20051028
  Serious: Yes (Hospitalization)
  Sender: FDA-Public Use
  Company Number: 2005085291

PATIENT
  Age: 77 Year
  Sex: Female
  Weight: 72.5755 kg

DRUGS (3)
  1. CELEBREX [Suspect]
     Indication: ILL-DEFINED DISORDER
     Dosage: 200 MG (200 MG, 1 IN 1 D) ORAL
     Route: 048
     Dates: end: 20040901
  2. ALL OTHER THERAPEUTIC PRODUCTS [Concomitant]
  3. PARACETAMOL [Concomitant]

REACTIONS (3)
  - HAEMATEMESIS [None]
  - NONSPECIFIC REACTION [None]
  - THROMBOSIS [None]
